FAERS Safety Report 23278577 (Version 1)
Quarter: 2023Q4

REPORT INFORMATION
  Report Type: Report from Study
  Country: CH (occurrence: CH)
  Receive Date: 20231208
  Receipt Date: 20231208
  Transmission Date: 20240110
  Serious: Yes (Hospitalization)
  Sender: FDA-Public Use
  Company Number: CH-NAPPMUNDI-GBR-2023-0112763

PATIENT
  Age: 54 Year
  Sex: Female

DRUGS (10)
  1. OXYCODONE HYDROCHLORIDE [Suspect]
     Active Substance: OXYCODONE HYDROCHLORIDE
     Indication: Product used for unknown indication
     Dosage: MAXIMUM DOSE OF 50 MILLIGRAM
     Route: 048
     Dates: start: 20230430
  2. OXYCODONE HYDROCHLORIDE [Suspect]
     Active Substance: OXYCODONE HYDROCHLORIDE
     Indication: Product used for unknown indication
     Dosage: MAXIMUM DOSE OF 15 MILLIGRAM
     Route: 048
     Dates: start: 20230430
  3. TRAZODONE HYDROCHLORIDE [Suspect]
     Active Substance: TRAZODONE HYDROCHLORIDE
     Indication: Product used for unknown indication
     Dosage: MAXIMUM DOSE OF 1650 MILLIGRAM
     Route: 048
     Dates: start: 20230430
  4. QUETIAPINE [Suspect]
     Active Substance: QUETIAPINE
     Indication: Product used for unknown indication
     Dosage: MAXIMUM DOSE OF 1000 MILLIGRAM
     Route: 048
     Dates: start: 20230430
  5. NEURONTIN [Suspect]
     Active Substance: GABAPENTIN
     Indication: Product used for unknown indication
     Dosage: MAXIMUM DOSE 700 MILLIGRAM
     Route: 048
     Dates: start: 20230430
  6. BROMAZEPAM [Suspect]
     Active Substance: BROMAZEPAM
     Indication: Product used for unknown indication
     Dosage: MAXIMUM DOSE OF 24 MILLIGRAM
     Route: 048
     Dates: start: 20230430
  7. SERTRALINE [Suspect]
     Active Substance: SERTRALINE HYDROCHLORIDE
     Indication: Product used for unknown indication
     Dosage: MAXIMUM DOSE OF 100 MILLIGRAM
     Route: 048
     Dates: start: 20230430
  8. ATORVASTATIN [Suspect]
     Active Substance: ATORVASTATIN
     Indication: Product used for unknown indication
     Dosage: MAXIMUM DOSE OF 400 MILLIGRAM
     Route: 048
     Dates: start: 20230430
  9. TIZANIDINE [Suspect]
     Active Substance: TIZANIDINE
     Indication: Product used for unknown indication
     Dosage: MAXIMUM DOSE OF 36 MILLIGRAM DRIP
     Route: 042
     Dates: start: 20230430
  10. DAFALGAN [Suspect]
     Active Substance: ACETAMINOPHEN
     Indication: Product used for unknown indication
     Dosage: MAXIMUM DOSE OF 2000 MILLIGRAM
     Route: 048
     Dates: start: 20230430

REACTIONS (2)
  - Intentional overdose [Recovering/Resolving]
  - Suicide attempt [Recovering/Resolving]

NARRATIVE: CASE EVENT DATE: 20230430
